FAERS Safety Report 8201637-4 (Version None)
Quarter: 2012Q1

REPORT INFORMATION
  Report Type: 
  Country: None (occurrence: None)
  Receive Date: 20120312
  Receipt Date: 20120310
  Transmission Date: 20120608
  Serious: No
  Sender: FDA-Public Use
  Company Number: US-PFIZER INC-2012058927

PATIENT
  Sex: Female
  Weight: 59.41 kg

DRUGS (2)
  1. CHANTIX [Suspect]
     Indication: SMOKING CESSATION THERAPY
     Dosage: UNK
     Route: 048
  2. CHANTIX [Suspect]
     Dosage: 0.5 MG, 1X/DAY
     Route: 048
     Dates: start: 20120222

REACTIONS (5)
  - FLATULENCE [None]
  - DIARRHOEA [None]
  - BRADYPHRENIA [None]
  - ABDOMINAL DISTENSION [None]
  - NAUSEA [None]
